FAERS Safety Report 7183607-0 (Version None)
Quarter: 2010Q4

REPORT INFORMATION
  Report Type: 
  Country: None (occurrence: None)
  Receive Date: 20101210
  Receipt Date: 20101110
  Transmission Date: 20110411
  Serious: Yes (Other)
  Sender: FDA-Public Use
  Company Number: 20109501

PATIENT
  Sex: Female

DRUGS (1)
  1. LIORESAL [Suspect]
     Indication: MUSCLE SPASTICITY
     Dosage: DAILY, INTRATHECAL
     Route: 037

REACTIONS (7)
  - APHAGIA [None]
  - DEVICE MALFUNCTION [None]
  - DEVICE POWER SOURCE ISSUE [None]
  - DRUG WITHDRAWAL SYNDROME [None]
  - PNEUMONIA [None]
  - UNDERDOSE [None]
  - VOMITING [None]
